FAERS Safety Report 13545414 (Version 1)
Quarter: 2017Q2

REPORT INFORMATION
  Report Type: Spontaneous
  Country: US (occurrence: US)
  Receive Date: 20170513
  Receipt Date: 20170513
  Transmission Date: 20170830
  Serious: Yes (Other)
  Sender: FDA-Public Use
  Company Number: None

PATIENT
  Age: 72 Year
  Sex: Female
  Weight: 79.65 kg

DRUGS (8)
  1. METEFORMIN [Concomitant]
  2. SYNTHROID [Concomitant]
     Active Substance: LEVOTHYROXINE SODIUM
  3. ATORVASTATIN [Concomitant]
     Active Substance: ATORVASTATIN
  4. METOPROLOL. [Concomitant]
     Active Substance: METOPROLOL
  5. CYA COBALAMIN 1000MCG/MLINJ [Suspect]
     Active Substance: CYANOCOBALAMIN
     Indication: VITAMIN B12 DEFICIENCY
     Dosage: ?          QUANTITY:1 INJECTION(S);OTHER FREQUENCY:1 X MONTH;?
     Route: 030
     Dates: start: 20170301, end: 20170512
  6. REGULAR MULTIVITAMIN [Concomitant]
  7. CYMBALTA [Concomitant]
     Active Substance: DULOXETINE HYDROCHLORIDE
  8. INOSITOL [Concomitant]
     Active Substance: INOSITOL

REACTIONS (2)
  - Injection site pain [None]
  - Injection site haematoma [None]

NARRATIVE: CASE EVENT DATE: 20170513
